FAERS Safety Report 24550132 (Version 2)
Quarter: 2025Q2

REPORT INFORMATION
  Report Type: Report from Study
  Country: CA (occurrence: CA)
  Receive Date: 20241025
  Receipt Date: 20250604
  Transmission Date: 20250717
  Serious: Yes (Hospitalization, Other)
  Sender: TAKEDA
  Company Number: CA-TAKEDA-2024TUS104714

PATIENT
  Age: 33 Year
  Sex: Female
  Weight: 89.796 kg

DRUGS (11)
  1. VEDOLIZUMAB [Suspect]
     Active Substance: VEDOLIZUMAB
     Indication: Colitis ulcerative
  2. VEDOLIZUMAB [Suspect]
     Active Substance: VEDOLIZUMAB
     Dosage: 300 MILLIGRAM, Q4WEEKS
     Dates: start: 20241018
  3. VEDOLIZUMAB [Suspect]
     Active Substance: VEDOLIZUMAB
     Indication: Colitis ulcerative
     Dosage: 108 MILLIGRAM, Q2WEEKS
     Dates: start: 20250501
  4. MESALAMINE [Concomitant]
     Active Substance: MESALAMINE
  5. GUANFACINE [Concomitant]
     Active Substance: GUANFACINE
  6. KETOTIFEN [Concomitant]
     Active Substance: KETOTIFEN
  7. FAMOTIDINE [Concomitant]
     Active Substance: FAMOTIDINE
  8. BILASTINE [Concomitant]
     Active Substance: BILASTINE
  9. DULOXETINE [Concomitant]
     Active Substance: DULOXETINE
  10. PREDNISONE [Concomitant]
     Active Substance: PREDNISONE
  11. BREO ELLIPTA [Concomitant]
     Active Substance: FLUTICASONE FUROATE\VILANTEROL TRIFENATATE

REACTIONS (5)
  - Colitis ulcerative [Recovering/Resolving]
  - Ectopic pregnancy [Recovered/Resolved]
  - Therapeutic reaction time decreased [Not Recovered/Not Resolved]
  - Social problem [Unknown]
  - Impaired work ability [Unknown]

NARRATIVE: CASE EVENT DATE: 20240914
